FAERS Safety Report 13084510 (Version 2)
Quarter: 2017Q1

REPORT INFORMATION
  Report Type: Spontaneous
  Country: US (occurrence: US)
  Receive Date: 20170104
  Receipt Date: 20170206
  Transmission Date: 20170428
  Serious: Yes (Death, Hospitalization)
  Sender: FDA-Public Use
  Company Number: US-ASTELLAS-2016US045662

PATIENT
  Age: 96 Year
  Sex: Male

DRUGS (1)
  1. XTANDI [Suspect]
     Active Substance: ENZALUTAMIDE
     Indication: PROSTATE CANCER
     Route: 048
     Dates: start: 201610, end: 201612

REACTIONS (7)
  - Unresponsive to stimuli [Unknown]
  - Dysphagia [Unknown]
  - Diarrhoea [Recovered/Resolved]
  - Cerebrovascular accident [Fatal]
  - Arteriosclerosis [Fatal]
  - Transient ischaemic attack [Unknown]
  - Dizziness [Not Recovered/Not Resolved]

NARRATIVE: CASE EVENT DATE: 20161114
